FAERS Safety Report 7516799-1 (Version None)
Quarter: 2011Q2

REPORT INFORMATION
  Report Type: 
  Country: None (occurrence: None)
  Receive Date: 20110601
  Receipt Date: 20110526
  Transmission Date: 20111010
  Serious: Yes (Death)
  Sender: FDA-Public Use
  Company Number: PHHY2011GB46403

PATIENT
  Age: 65 Year
  Sex: Male

DRUGS (2)
  1. DIHYDROCODEINE BITARTRATE INJ [Suspect]
  2. TRIMETHOPRIM [Suspect]

REACTIONS (3)
  - CHRONIC OBSTRUCTIVE PULMONARY DISEASE [None]
  - OSTEOARTHRITIS [None]
  - BRONCHOPNEUMONIA [None]
